FAERS Safety Report 7079663-0 (Version None)
Quarter: 2010Q4

REPORT INFORMATION
  Report Type: 
  Country: None (occurrence: None)
  Receive Date: 20101102
  Receipt Date: 20101021
  Transmission Date: 20110411
  Serious: Yes (Hospitalization, Other)
  Sender: FDA-Public Use
  Company Number: PHHY2010US63090

PATIENT
  Sex: Female

DRUGS (11)
  1. TEGRETOL [Suspect]
     Dosage: 200 MG, BID
     Route: 048
     Dates: start: 20050727
  2. TRILEPTAL [Suspect]
     Dosage: 300 MG, BID
     Dates: start: 20040801, end: 20050601
  3. OXCARBAZEPINE [Suspect]
     Indication: INSOMNIA
     Dosage: UNK
  4. ATIVAN [Suspect]
     Dosage: 0.5 MG, UNK
  5. ZOLOFT [Suspect]
  6. ZYPREXA [Suspect]
  7. LITHIUM [Suspect]
  8. EFFEXOR [Suspect]
  9. CARBAMAZEPINE [Suspect]
  10. LEPREXO [Suspect]
  11. TRAZODONE [Concomitant]
     Indication: INSOMNIA
     Dosage: 100 MG, QHS
     Route: 048
     Dates: start: 20050701

REACTIONS (25)
  - ABDOMINAL DISCOMFORT [None]
  - BEDRIDDEN [None]
  - CARDIAC DISORDER [None]
  - CONSTIPATION [None]
  - CONTUSION [None]
  - DIARRHOEA [None]
  - DIZZINESS [None]
  - FALL [None]
  - FATIGUE [None]
  - FEAR [None]
  - FEELING ABNORMAL [None]
  - FUNGAL INFECTION [None]
  - LUNG INFECTION [None]
  - MALAISE [None]
  - MEMORY IMPAIRMENT [None]
  - MUSCLE SPASMS [None]
  - NERVOUSNESS [None]
  - PERIPHERAL COLDNESS [None]
  - POOR PERIPHERAL CIRCULATION [None]
  - RASH GENERALISED [None]
  - RAYNAUD'S PHENOMENON [None]
  - RECTAL HAEMORRHAGE [None]
  - SKIN EXFOLIATION [None]
  - VISUAL IMPAIRMENT [None]
  - VOMITING [None]
